FAERS Safety Report 23110574 (Version 1)
Quarter: 2023Q4

REPORT INFORMATION
  Report Type: Report from Study
  Country: CN (occurrence: CN)
  Receive Date: 20231026
  Receipt Date: 20231026
  Transmission Date: 20240110
  Serious: Yes (Hospitalization)
  Sender: FDA-Public Use
  Company Number: CN-JNJFOC-20231050763

PATIENT
  Age: 70 Year
  Sex: Male
  Weight: 56.5 kg

DRUGS (11)
  1. DARATUMUMAB [Suspect]
     Active Substance: DARATUMUMAB
     Indication: Plasma cell myeloma
     Dosage: MOST RECENT DOSE ON 09-OCT-2023
     Route: 058
     Dates: start: 20230613
  2. POMALIDOMIDE [Suspect]
     Active Substance: POMALIDOMIDE
     Indication: Plasma cell myeloma
     Route: 048
     Dates: start: 20230613
  3. POMALIDOMIDE [Suspect]
     Active Substance: POMALIDOMIDE
     Dosage: FORGOT TO TAKE MEDICATION 20-SEP-2023 TO 23-SEP-2023
     Route: 048
     Dates: start: 20230921, end: 20230922
  4. POMALIDOMIDE [Suspect]
     Active Substance: POMALIDOMIDE
     Route: 048
     Dates: start: 20230924, end: 20230926
  5. POMALIDOMIDE [Suspect]
     Active Substance: POMALIDOMIDE
     Dosage: 27-SEP-2023 TO 08-OCT-2023 STOP TAKING DUE TO INTESTINAL OBSTRUCTION
     Route: 048
     Dates: start: 20231009, end: 20231011
  6. DEXAMETHASONE [Suspect]
     Active Substance: DEXAMETHASONE
     Indication: Plasma cell myeloma
     Dosage: SUSPENDING ON SEP 20, 27  AND OCT 09 AND 11 DUE TO INTESTINAL OBSTRUCTION
     Route: 048
     Dates: start: 20230613, end: 20231009
  7. ACYCLOVIR [Concomitant]
     Active Substance: ACYCLOVIR
     Indication: Infection prophylaxis
     Route: 048
     Dates: start: 20230626
  8. AMBROXOL HYDROCHLORIDE [Concomitant]
     Active Substance: AMBROXOL HYDROCHLORIDE
     Indication: Productive cough
     Route: 048
     Dates: start: 20230626
  9. SULFAMETHOXAZOLE [Concomitant]
     Active Substance: SULFAMETHOXAZOLE
     Indication: Infection prophylaxis
     Route: 048
     Dates: start: 20230626
  10. OMEPRAZOLE [Concomitant]
     Active Substance: OMEPRAZOLE
     Indication: Abdominal discomfort
     Route: 048
     Dates: start: 20230822
  11. LEVOFLOXACIN [Concomitant]
     Active Substance: LEVOFLOXACIN
     Indication: Infection prophylaxis
     Route: 048
     Dates: start: 20230626

REACTIONS (1)
  - Ileal perforation [Not Recovered/Not Resolved]

NARRATIVE: CASE EVENT DATE: 20231012
